FAERS Safety Report 9798711 (Version 2)
Quarter: 2014Q1

REPORT INFORMATION
  Report Type: Spontaneous
  Country: US (occurrence: US)
  Receive Date: 20140106
  Receipt Date: 20140106
  Transmission Date: 20141002
  Serious: No
  Sender: FDA-Public Use
  Company Number: US-GILEAD-2010-0029586

PATIENT
  Sex: Female
  Weight: 58.97 kg

DRUGS (10)
  1. LETAIRIS [Suspect]
     Indication: PULMONARY ARTERIAL HYPERTENSION
     Route: 048
     Dates: start: 20100510
  2. REVATIO [Concomitant]
  3. METOPROLOL [Concomitant]
  4. LISINOPRIL [Concomitant]
  5. FUROSEMIDE [Concomitant]
  6. ASPIRIN [Concomitant]
  7. CITALOPRAM [Concomitant]
  8. ARIMIDEX [Concomitant]
  9. POTASSIUM CHLORIDE [Concomitant]
  10. MULTIVITAMIN [Concomitant]

REACTIONS (1)
  - Anaemia [Unknown]
